FAERS Safety Report 7065585-8 (Version None)
Quarter: 2010Q4

REPORT INFORMATION
  Report Type: 
  Country: None (occurrence: None)
  Receive Date: 20101027
  Receipt Date: 20101020
  Transmission Date: 20110411
  Serious: Yes (Disabling)
  Sender: FDA-Public Use
  Company Number: GB-TEVA-252988ISR

PATIENT
  Age: 38 Year
  Sex: Male
  Weight: 87 kg

DRUGS (1)
  1. SIMVASTATIN [Suspect]
     Indication: HYPERLIPIDAEMIA
     Route: 048
     Dates: start: 20100922, end: 20100926

REACTIONS (2)
  - MENTAL IMPAIRMENT [None]
  - PARANOIA [None]
